FAERS Safety Report 23472358 (Version 1)
Quarter: 2024Q1

REPORT INFORMATION
  Report Type: Spontaneous
  Country: CH (occurrence: CH)
  Receive Date: 20240202
  Receipt Date: 20240202
  Transmission Date: 20240410
  Serious: Yes (Hospitalization)
  Sender: FDA-Public Use
  Company Number: None

PATIENT
  Age: 17 Year
  Sex: Male

DRUGS (14)
  1. LORAZEPAM [Suspect]
     Active Substance: LORAZEPAM
     Dosage: TIME INTERVAL: 1 TOTAL: IN TOTAL
     Route: 048
     Dates: start: 20240102, end: 20240102
  2. ATARAX [Concomitant]
     Active Substance: HYDROXYZINE HYDROCHLORIDE
     Dosage: TIME INTERVAL: AS NECESSARY: 25 MG EN R?SERVE ; AS NECESSARY
     Route: 048
  3. ATARAX [Concomitant]
     Active Substance: HYDROXYZINE HYDROCHLORIDE
     Dosage: TIME INTERVAL: 1 TOTAL: IN TOTAL
     Route: 048
     Dates: start: 20240102, end: 20240102
  4. ESCITALOPRAM [Suspect]
     Active Substance: ESCITALOPRAM OXALATE
     Route: 048
  5. ESCITALOPRAM [Suspect]
     Active Substance: ESCITALOPRAM OXALATE
     Dosage: TIME INTERVAL: 1 TOTAL: IN TOTAL
     Route: 048
     Dates: start: 20240102, end: 20240102
  6. LAMOTRIGINE [Concomitant]
     Active Substance: LAMOTRIGINE
     Route: 048
  7. SEROQUEL [Concomitant]
     Active Substance: QUETIAPINE FUMARATE
     Dosage: SOUS FORME RETARD
     Route: 048
  8. SEROQUEL [Concomitant]
     Active Substance: QUETIAPINE FUMARATE
     Dosage: + 2 R?SERVES/JOUR DE 12.5 MG
     Route: 048
  9. SEROQUEL [Concomitant]
     Active Substance: QUETIAPINE FUMARATE
     Dosage: TIME INTERVAL: AS NECESSARY: + 2 R?SERVES/JOUR DE 12.5 MG  ; AS NECESSARY
     Route: 048
  10. LISDEXAMFETAMINE DIMESYLATE [Concomitant]
     Active Substance: LISDEXAMFETAMINE DIMESYLATE
     Route: 048
     Dates: end: 202311
  11. LISDEXAMFETAMINE DIMESYLATE [Concomitant]
     Active Substance: LISDEXAMFETAMINE DIMESYLATE
     Dosage: TIME INTERVAL: 1 TOTAL: IN TOTAL
     Route: 048
     Dates: start: 20240102, end: 20240102
  12. LISDEXAMFETAMINE DIMESYLATE [Concomitant]
     Active Substance: LISDEXAMFETAMINE DIMESYLATE
     Route: 048
     Dates: start: 202312
  13. MEFENAMIC ACID [Suspect]
     Active Substance: MEFENAMIC ACID
     Dosage: TIME INTERVAL: 1 TOTAL: IN TOTAL
     Route: 048
     Dates: start: 20240102, end: 20240102
  14. IBUPROFEN [Suspect]
     Active Substance: IBUPROFEN
     Dosage: TIME INTERVAL: 1 TOTAL: 39 CPR D^IBUPROF?NE (IRFEN?) 400MG, 10 CPR D^IBUPROF?NE (IRFEN?) 600MG ; ...
     Route: 048
     Dates: start: 20240102, end: 20240102

REACTIONS (7)
  - Altered state of consciousness [Recovered/Resolved]
  - Intentional overdose [Recovered/Resolved]
  - Hypotension [Recovered/Resolved]
  - Sinus tachycardia [Recovered/Resolved]
  - Agitation [Recovered/Resolved]
  - Mydriasis [Recovered/Resolved]
  - Hallucination [Recovered/Resolved]

NARRATIVE: CASE EVENT DATE: 20240102
